FAERS Safety Report 19102318 (Version 1)
Quarter: 2021Q2

REPORT INFORMATION
  Report Type: Spontaneous
  Country: US (occurrence: US)
  Receive Date: 20210406
  Receipt Date: 20210406
  Transmission Date: 20210717
  Serious: Yes (Death)
  Sender: FDA-Public Use
  Company Number: None

PATIENT
  Age: 52 Year
  Sex: Male

DRUGS (3)
  1. ENVARSUS XR [Suspect]
     Active Substance: TACROLIMUS
  2. MYFORTIC [Suspect]
     Active Substance: MYCOPHENOLATE SODIUM
  3. PREDNISONE. [Suspect]
     Active Substance: PREDNISONE

REACTIONS (1)
  - Death [None]
